FAERS Safety Report 23103988 (Version 5)
Quarter: 2024Q3

REPORT INFORMATION
  Report Type: Report from Study
  Country: JP (occurrence: JP)
  Receive Date: 20231025
  Receipt Date: 20240921
  Transmission Date: 20241016
  Serious: Yes (Death, Other)
  Sender: ABBVIE
  Company Number: JP-TAKEDA-2023TJP014005

PATIENT
  Age: 66 Year
  Sex: Male

DRUGS (11)
  1. LEUPROLIDE ACETATE [Suspect]
     Active Substance: ISOPROPYL ALCOHOL\LEUPROLIDE ACETATE
     Indication: Bulbospinal muscular atrophy congenital
     Dosage: 11.25 MILLIGRAM, EVERY THREE MONTHS
     Route: 058
     Dates: start: 20230706, end: 20230706
  2. HARNAL [Concomitant]
     Active Substance: TAMSULOSIN HYDROCHLORIDE
     Indication: Bulbospinal muscular atrophy congenital
     Route: 065
     Dates: end: 20230910
  3. TAMSULOSIN HYDROCHLORIDE [Concomitant]
     Active Substance: TAMSULOSIN HYDROCHLORIDE
     Indication: Product used for unknown indication
     Route: 065
  4. DAYVIGO [Concomitant]
     Active Substance: LEMBOREXANT
     Indication: Product used for unknown indication
     Dosage: UNK
     Route: 065
  5. BETHANECHOL CHLORIDE [Concomitant]
     Active Substance: BETHANECHOL CHLORIDE
     Indication: Bulbospinal muscular atrophy congenital
     Dosage: 20 MILLIGRAM
     Route: 065
     Dates: end: 20230910
  6. MAGNESIUM OXIDE [Concomitant]
     Active Substance: MAGNESIUM OXIDE
     Indication: Bulbospinal muscular atrophy congenital
     Dosage: 330 MILLIGRAM
     Route: 065
     Dates: end: 20230910
  7. CARBOCYSTEINE [Concomitant]
     Active Substance: CARBOCYSTEINE
     Indication: Bulbospinal muscular atrophy congenital
     Dosage: 500 MILLIGRAM
     Route: 065
     Dates: end: 20230910
  8. CARBOCYSTEINE [Concomitant]
     Active Substance: CARBOCYSTEINE
     Indication: Product used for unknown indication
     Route: 065
  9. RAMELTEON [Concomitant]
     Active Substance: RAMELTEON
     Indication: Product used for unknown indication
     Dosage: UNK
     Route: 065
  10. TRAZODONE [Concomitant]
     Active Substance: TRAZODONE HYDROCHLORIDE
     Indication: Product used for unknown indication
     Route: 065
  11. MIYA-BM [Concomitant]
     Active Substance: CLOSTRIDIUM BUTYRICUM SPORES STRAIN M-55
     Indication: Bulbospinal muscular atrophy congenital
     Dosage: 2 DOSAGE FORM
     Route: 065
     Dates: end: 20230910

REACTIONS (1)
  - Pneumonia [Fatal]

NARRATIVE: CASE EVENT DATE: 20230831
